FAERS Safety Report 12222882 (Version 1)
Quarter: 2016Q1

REPORT INFORMATION
  Report Type: Spontaneous
  Country: US (occurrence: US)
  Receive Date: 20160330
  Receipt Date: 20160330
  Transmission Date: 20160526
  Serious: No
  Sender: FDA-Public Use
  Company Number: US-PERRIGO-15US004130

PATIENT
  Age: 71 Year
  Sex: Female
  Weight: 83.9 kg

DRUGS (15)
  1. ACETAMINOPHEN. [Suspect]
     Active Substance: ACETAMINOPHEN
     Dosage: 1300 MG, SINGLE
     Route: 048
     Dates: start: 20150412, end: 20150412
  2. FIORICET [Suspect]
     Active Substance: ACETAMINOPHEN\BUTALBITAL\CAFFEINE
     Indication: HEADACHE
     Dosage: TOTAL OF FOUR CAPLETS, UNK
     Route: 048
     Dates: start: 20150411, end: 20150411
  3. ACETAMINOPHEN. [Suspect]
     Active Substance: ACETAMINOPHEN
     Dosage: 1300 MG, BID
     Route: 048
     Dates: start: 20150410, end: 20150410
  4. FIORICET [Suspect]
     Active Substance: ACETAMINOPHEN\BUTALBITAL\CAFFEINE
     Indication: PAIN
     Dosage: ONE CAPLET, BID
     Route: 048
     Dates: start: 20150412, end: 20150412
  5. ACETAMINOPHEN. [Suspect]
     Active Substance: ACETAMINOPHEN
     Dosage: 1300 MG, SINGLE
     Route: 048
     Dates: start: 20150409, end: 20150409
  6. FIORICET [Suspect]
     Active Substance: ACETAMINOPHEN\BUTALBITAL\CAFFEINE
     Dosage: 1 CAPLET, TID
     Route: 048
     Dates: start: 20150413, end: 20150413
  7. FIORICET [Suspect]
     Active Substance: ACETAMINOPHEN\BUTALBITAL\CAFFEINE
     Dosage: ONE CAPLET, BID
     Route: 048
     Dates: start: 20150414, end: 20150414
  8. XARELTO [Concomitant]
     Active Substance: RIVAROXABAN
     Indication: ANTICOAGULANT THERAPY
     Dosage: 20 MG, QD
     Route: 065
  9. ACETAMINOPHEN. [Suspect]
     Active Substance: ACETAMINOPHEN
     Dosage: 1300 MG, SINGLE
     Route: 048
     Dates: start: 20150405, end: 20150405
  10. ACETAMINOPHEN. [Suspect]
     Active Substance: ACETAMINOPHEN
     Dosage: 650 MG, QD
     Route: 048
     Dates: start: 20150413, end: 20150414
  11. ACETAMINOPHEN. [Suspect]
     Active Substance: ACETAMINOPHEN
     Indication: PAIN
     Dosage: 1300 MG, BID
     Route: 048
     Dates: start: 20150404, end: 20150404
  12. FIORICET [Suspect]
     Active Substance: ACETAMINOPHEN\BUTALBITAL\CAFFEINE
     Dosage: ONE CAPLET, BID
     Route: 048
     Dates: start: 20150415, end: 20150415
  13. CARTIA XT [Suspect]
     Active Substance: DILTIAZEM HYDROCHLORIDE
     Indication: CARDIAC DISORDER
     Dosage: 240 MG, UNK
     Route: 048
     Dates: start: 20150401, end: 20150415
  14. ACETAMINOPHEN. [Suspect]
     Active Substance: ACETAMINOPHEN
     Dosage: 1300 MG, SINGLE
     Route: 048
     Dates: start: 20150416, end: 20150416
  15. FIORICET [Suspect]
     Active Substance: ACETAMINOPHEN\BUTALBITAL\CAFFEINE
     Dosage: ONE CAPLET, BID
     Route: 048
     Dates: start: 20150416, end: 20150416

REACTIONS (7)
  - Nausea [Recovering/Resolving]
  - Faeces discoloured [Not Recovered/Not Resolved]
  - Inappropriate schedule of drug administration [Recovered/Resolved]
  - Diarrhoea [Recovered/Resolved]
  - Abdominal pain upper [Recovering/Resolving]
  - Dry mouth [Recovered/Resolved]
  - Drug administration error [Recovered/Resolved]

NARRATIVE: CASE EVENT DATE: 20150404
